FAERS Safety Report 16495517 (Version 1)
Quarter: 2019Q2

REPORT INFORMATION
  Report Type: Spontaneous
  Country: US (occurrence: US)
  Receive Date: 20190628
  Receipt Date: 20190628
  Transmission Date: 20190711
  Serious: No
  Sender: FDA-Public Use
  Company Number: US-PFIZER INC-2019274728

PATIENT
  Age: 65 Year
  Sex: Male

DRUGS (1)
  1. NALOXONE HCL [Suspect]
     Active Substance: NALOXONE HYDROCHLORIDE
     Dosage: 4 MG, UNK
     Route: 042
     Dates: start: 201904

REACTIONS (3)
  - Prescribed overdose [Unknown]
  - Diarrhoea [Recovered/Resolved]
  - Grimacing [Recovered/Resolved]

NARRATIVE: CASE EVENT DATE: 201904
